FAERS Safety Report 8818800 (Version 2)
Quarter: 2014Q3

REPORT INFORMATION
  Report Type: Report from Study
  Country: US (occurrence: US)
  Receive Date: 20121001
  Receipt Date: 20140916
  Transmission Date: 20150326
  Serious: Yes (Other)
  Sender: FDA-Public Use
  Company Number: US-ROCHE-1130022

PATIENT
  Sex: Female
  Weight: 74 kg

DRUGS (10)
  1. DECADRON [Concomitant]
     Active Substance: DEXAMETHASONE
     Dosage: QOD
     Route: 065
  2. DYAZIDE [Concomitant]
     Active Substance: HYDROCHLOROTHIAZIDE\TRIAMTERENE
     Route: 065
  3. ATIVAN [Concomitant]
     Active Substance: LORAZEPAM
     Dosage: AS REQUIRED
     Route: 065
  4. NEUPOGEN [Concomitant]
     Active Substance: FILGRASTIM
     Route: 065
  5. HERCEPTIN [Suspect]
     Active Substance: TRASTUZUMAB
     Indication: BREAST CANCER
     Dosage: LOADING DOSE (290MG)
     Route: 042
     Dates: start: 19990121
  6. HERCEPTIN [Suspect]
     Active Substance: TRASTUZUMAB
     Dosage: MAINTENANCE DOSE (150MG)?- FURTHER ADMINISTRATIONS ON 03/FEB/1999, 10/FEB/1999, 17/FEB/1999, 24/FEB/
     Route: 042
  7. VITAMIN E [Concomitant]
     Active Substance: .ALPHA.-TOCOPHEROL
  8. PAXIL (UNITED STATES) [Concomitant]
     Route: 065
  9. ZANTAC [Concomitant]
     Active Substance: RANITIDINE HYDROCHLORIDE
     Route: 065
  10. BENADRYL [Concomitant]
     Active Substance: DIPHENHYDRAMINE HYDROCHLORIDE
     Route: 065

REACTIONS (4)
  - Depression [Unknown]
  - Pleuritic pain [Recovering/Resolving]
  - Metastases to lung [Unknown]
  - Rales [Unknown]
